FAERS Safety Report 24192383 (Version 1)
Quarter: 2024Q3

REPORT INFORMATION
  Report Type: Spontaneous
  Country: US (occurrence: US)
  Receive Date: 20240809
  Receipt Date: 20240809
  Transmission Date: 20241016
  Serious: No
  Sender: AMGEN
  Company Number: US-AMGEN-USASP2024153776

PATIENT
  Sex: Female
  Weight: 81 kg

DRUGS (18)
  1. XGEVA [Suspect]
     Active Substance: DENOSUMAB
     Indication: Product used for unknown indication
     Dosage: UNK
     Route: 065
     Dates: end: 201902
  2. IBRANCE [Suspect]
     Active Substance: PALBOCICLIB
     Indication: Breast cancer female
     Dosage: 75 MILLIGRAM, QD (1-21 DAYS OF 28 DAY CYCLE)
     Route: 048
     Dates: start: 201802
  3. IBRANCE [Suspect]
     Active Substance: PALBOCICLIB
     Indication: Breast cancer metastatic
     Dosage: 75 MILLIGRAM, QD (1-21 DAYS OF 28 DAY CYCLE)
     Route: 048
     Dates: start: 20240315
  4. IBRANCE [Suspect]
     Active Substance: PALBOCICLIB
     Indication: HER2 negative breast cancer
     Dosage: 75 MILLIGRAM, QD (1-21 DAYS OF 28 DAY CYCLE)
     Route: 048
     Dates: start: 20240410
  5. IBRANCE [Suspect]
     Active Substance: PALBOCICLIB
     Dosage: 75 MILLIGRAM, QD (1-21 DAYS OF 28 DAY CYCLE)
     Route: 048
     Dates: start: 20240526
  6. IBRANCE [Suspect]
     Active Substance: PALBOCICLIB
     Dosage: 75 MILLIGRAM, QD (1-21 DAYS OF 28 DAY CYCLE)
     Route: 048
     Dates: start: 20240619
  7. IBRANCE [Suspect]
     Active Substance: PALBOCICLIB
     Dosage: 75 MILLIGRAM, QD (1-21 DAYS OF 28 DAY CYCLE)
     Route: 048
     Dates: start: 20240712
  8. PALBOCICLIB [Suspect]
     Active Substance: PALBOCICLIB
     Indication: Breast cancer female
     Dosage: 100 MILLIGRAM, QD
     Route: 065
     Dates: start: 201807
  9. PALBOCICLIB [Suspect]
     Active Substance: PALBOCICLIB
     Indication: Breast cancer metastatic
     Dosage: 75 MILLIGRAM, QD
     Route: 065
     Dates: start: 202007
  10. PALBOCICLIB [Suspect]
     Active Substance: PALBOCICLIB
     Indication: HER2 negative breast cancer
  11. ANASTROZOLE [Concomitant]
     Active Substance: ANASTROZOLE
  12. GOSERELIN [Concomitant]
     Active Substance: GOSERELIN
     Dosage: UNK UNK, QMO
  13. ZOLEDRONIC ACID [Concomitant]
     Active Substance: ZOLEDRONIC ACID
     Indication: Prophylaxis
     Dosage: UNK
     Route: 065
  14. ZOLEDRONIC ACID [Concomitant]
     Active Substance: ZOLEDRONIC ACID
     Dosage: ONCE EVERY 12 WEEKS
     Route: 065
     Dates: start: 201912
  15. CELEXA [Concomitant]
     Active Substance: CITALOPRAM HYDROBROMIDE
  16. NEURONTIN [Concomitant]
     Active Substance: GABAPENTIN
     Dosage: 200 MILLIGRAM, QD
     Route: 048
     Dates: start: 20231211, end: 20240608
  17. EFFEXOR [Concomitant]
     Active Substance: VENLAFAXINE HYDROCHLORIDE
  18. LUPRON [Concomitant]
     Active Substance: LEUPROLIDE ACETATE
     Dosage: UNK UNK, QMO

REACTIONS (6)
  - Neutrophil count decreased [Unknown]
  - Arthralgia [Unknown]
  - Pain in extremity [Unknown]
  - Piriformis syndrome [Unknown]
  - Sinusitis [Not Recovered/Not Resolved]
  - White blood cell count decreased [Unknown]

NARRATIVE: CASE EVENT DATE: 20240415
